FAERS Safety Report 9499593 (Version 3)
Quarter: 2013Q4

REPORT INFORMATION
  Report Type: Spontaneous
  Country: US (occurrence: None)
  Receive Date: 20130107
  Receipt Date: 20131226
  Transmission Date: 20140711
  Serious: Yes (Other)
  Sender: FDA-Public Use
  Company Number: PHEH2012US022575

PATIENT
  Age: 60 Year
  Sex: Female
  Weight: 75.7 kg

DRUGS (3)
  1. GILENYA [Suspect]
     Indication: MULTIPLE SCLEROSIS
     Dates: start: 20121113
  2. LEVOTHYROXIN [Concomitant]
  3. CARBAMAZEPINE (CARBAMAZEPINE) [Concomitant]

REACTIONS (2)
  - Somnolence [None]
  - Dizziness [None]
